FAERS Safety Report 5650610-9 (Version None)
Quarter: 2008Q1

REPORT INFORMATION
  Report Type: 
  Country: None (occurrence: None)
  Receive Date: 20080303
  Receipt Date: 20080225
  Transmission Date: 20080703
  Serious: Yes (Life-Threatening)
  Sender: FDA-Public Use
  Company Number: GXKR2008DE01896

PATIENT
  Age: 76 Year
  Sex: Female

DRUGS (26)
  1. RANITIDINE HCL [Suspect]
     Indication: PROPHYLAXIS AGAINST GASTROINTESTINAL ULCER
     Dosage: 150 MG, QD, ORAL
     Route: 048
     Dates: start: 20040928, end: 20041026
  2. ACC (NGX)(ACETYLCYSTEINE) EFFERVESCENT TABLET [Suspect]
     Dosage: 200 MG, TID, ORAL
     Route: 048
     Dates: start: 20041005, end: 20041013
  3. PHENYTOIN [Suspect]
     Indication: CONVULSION PROPHYLAXIS
     Dosage: 100 MG, 5 QD, ORAL
     Route: 048
     Dates: start: 20040930, end: 20041026
  4. METOPROLOL SUCCINATE [Suspect]
     Indication: HYPERTENSION
     Dosage: ORAL
     Route: 048
     Dates: start: 20041005, end: 20041026
  5. BENALAPRIL(ENALAPRIL) 5MG [Suspect]
     Indication: HYPERTENSION
     Dosage: 5 MG, BID, ORAL
     Route: 048
     Dates: start: 20041005, end: 20041026
  6. ASS(ACETYLSALICYLIC ACID) 100MG [Suspect]
     Indication: THROMBOSIS PROPHYLAXIS
     Dosage: 100 MG, QD, ORAL
     Route: 048
     Dates: start: 20041005, end: 20041026
  7. KALINOR /TUR/(POTASSIUM BICARBONATE, POTASSIUM CITRATE) [Suspect]
     Indication: HYPOKALAEMIA
     Dosage: QD, ORAL
     Route: 048
     Dates: start: 20041005, end: 20041026
  8. NORVASC [Suspect]
     Indication: HYPERTENSION
     Dosage: 5MG, QD, ORAL
     Route: 048
     Dates: start: 20041006, end: 20041026
  9. CLEXANE(ENOXAPARIN SODUM, HEPARIN-FRACTION, SODIMUM SALT) 0.4MG [Suspect]
     Indication: THROMBOSIS PROPHYLAXIS
     Dosage: 0.4 MG, QD, SUBCUTANEOUS
     Route: 058
     Dates: start: 20041007, end: 20041026
  10. HALDOL [Suspect]
     Indication: RESTLESSNESS
     Dosage: ONCE/SINGLE, INTRAVENOUS
     Route: 042
     Dates: start: 20041010, end: 20041010
  11. HALDOL [Suspect]
     Indication: RESTLESSNESS
     Dosage: ORAL
     Route: 048
     Dates: start: 20041010, end: 20041025
  12. LORAZEPAM [Suspect]
     Indication: RESTLESSNESS
     Dosage: 1 G, ONCE/SINGLE, INTRAVENOUS
     Route: 042
     Dates: start: 20041010, end: 20041010
  13. LORAZEPAM [Suspect]
     Indication: RESTLESSNESS
     Dosage: 1 MG, QD, ORAL
     Route: 048
     Dates: start: 20041011, end: 20041027
  14. SODIUM CHLORIDE [Suspect]
     Indication: PROPHYLAXIS AGAINST GASTROINTESTINAL ULCER
     Dosage: 150 MG, QD, ORAL
     Route: 048
     Dates: start: 20040928, end: 20041026
  15. MOXONIDINE (MOXONIDINE) [Concomitant]
  16. AMLODIPINE [Concomitant]
  17. TORSEMIDE [Concomitant]
  18. DIPIDOLOR (PIRITRAMIDE) [Concomitant]
  19. SAB SIMPLEX (DIMETICONE) [Concomitant]
  20. ADALAT [Concomitant]
  21. MERONEM (MEROPENEM) [Concomitant]
  22. REKAWAN (POTASSIUM CHLORIDE) [Concomitant]
  23. VALPROIC ACID [Concomitant]
  24. GASTROSIL (METOCLOPRAMIDE HYDROCHLORIDE) [Concomitant]
  25. MIRTAZAPINE [Concomitant]
  26. FENISTIL (DIMETINDENE MALEATE) [Concomitant]

REACTIONS (1)
  - TOXIC EPIDERMAL NECROLYSIS [None]
